FAERS Safety Report 22304819 (Version 1)
Quarter: 2023Q2

REPORT INFORMATION
  Report Type: Spontaneous
  Country: US (occurrence: None)
  Receive Date: 20230509
  Receipt Date: 20230509
  Transmission Date: 20230722
  Serious: Yes (Hospitalization)
  Sender: FDA-Public Use
  Company Number: None

PATIENT
  Sex: Female
  Weight: 59.42 kg

DRUGS (8)
  1. PIQRAY [Suspect]
     Active Substance: ALPELISIB
     Indication: Breast cancer female
     Dosage: FREQUENCY : DAILY;?
     Route: 048
  2. ACETAMINOPHEN [Concomitant]
     Active Substance: ACETAMINOPHEN
  3. DICLOFENAC [Concomitant]
     Active Substance: DICLOFENAC
  4. ESOMEPRAZOLE [Concomitant]
  5. IBUPROFEN [Concomitant]
     Active Substance: IBUPROFEN
  6. NITROSTAT [Concomitant]
     Active Substance: NITROGLYCERIN
  7. NOVOLOG [Concomitant]
     Active Substance: INSULIN ASPART
  8. ONDANSETRON [Concomitant]

REACTIONS (4)
  - Cerebrovascular accident [None]
  - Feeling abnormal [None]
  - Confusional state [None]
  - Meningitis [None]
